FAERS Safety Report 8452205-0 (Version None)
Quarter: 2012Q2

REPORT INFORMATION
  Report Type: 
  Country: None (occurrence: None)
  Receive Date: 20120620
  Receipt Date: 20120501
  Transmission Date: 20120825
  Serious: No
  Sender: FDA-Public Use
  Company Number: US-VERTEX PHARMACEUTICALS INC.-AE-2012-004757

PATIENT
  Sex: Female
  Weight: 68.1 kg

DRUGS (1)
  1. INCIVEK [Suspect]
     Indication: HEPATITIS C
     Route: 048

REACTIONS (4)
  - FATIGUE [None]
  - PRURITUS [None]
  - NAUSEA [None]
  - ANAEMIA [None]
